FAERS Safety Report 5488341-0 (Version None)
Quarter: 2007Q4

REPORT INFORMATION
  Report Type: 
  Country: None (occurrence: None)
  Receive Date: 20071017
  Receipt Date: 20071015
  Transmission Date: 20080405
  Serious: Yes (Other)
  Sender: FDA-Public Use
  Company Number: A0688065A

PATIENT
  Sex: Male

DRUGS (1)
  1. REQUIP [Suspect]
     Indication: DRUG USE FOR UNKNOWN INDICATION
     Dosage: .25MGD PER DAY
     Route: 065
     Dates: start: 20060101

REACTIONS (5)
  - ANXIETY [None]
  - DRUG DEPENDENCE [None]
  - ILL-DEFINED DISORDER [None]
  - PAIN [None]
  - RESTLESSNESS [None]
